FAERS Safety Report 14274518 (Version 2)
Quarter: 2018Q1

REPORT INFORMATION
  Report Type: Report from Study
  Country: US (occurrence: US)
  Receive Date: 20171211
  Receipt Date: 20180115
  Transmission Date: 20180508
  Serious: Yes (Hospitalization, Other)
  Sender: FDA-Public Use
  Company Number: US-MYLANLABS-2017M1077395

PATIENT
  Sex: Male

DRUGS (2)
  1. CLOZAPINE. [Suspect]
     Active Substance: CLOZAPINE
     Indication: PRODUCT USED FOR UNKNOWN INDICATION
     Dosage: 100 MG, QD
     Dates: start: 20171205
  2. CLOZAPINE. [Suspect]
     Active Substance: CLOZAPINE
     Dosage: 200 MG, HS
     Dates: start: 20171205

REACTIONS (1)
  - Hospitalisation [Unknown]
